FAERS Safety Report 8962423 (Version 2)
Quarter: 2012Q4

REPORT INFORMATION
  Report Type: 
  Country: KR (occurrence: KR)
  Receive Date: 20121213
  Receipt Date: 20121220
  Transmission Date: 20130627
  Serious: No
  Sender: FDA-Public Use
  Company Number: KR-ALLERGAN-1217063US

PATIENT
  Age: 67 Year
  Sex: Female

DRUGS (1)
  1. PRED FORTE [Suspect]
     Indication: POSTOPERATIVE CARE
     Dosage: 2 Gtt, bid
     Route: 045
     Dates: start: 20121129, end: 20121206

REACTIONS (2)
  - Arrhythmia [Recovering/Resolving]
  - Off label use [Unknown]
